FAERS Safety Report 8318759-X (Version None)
Quarter: 2012Q2

REPORT INFORMATION
  Report Type: 
  Country: None (occurrence: None)
  Receive Date: 20120426
  Receipt Date: 20120426
  Transmission Date: 20120825
  Serious: Yes (Disabling)
  Sender: FDA-Public Use
  Company Number: None

PATIENT
  Age: 53 Year
  Sex: Female
  Weight: 136.5327 kg

DRUGS (1)
  1. SPRINTEC [Suspect]
     Indication: MENORRHAGIA
     Dosage: 1 TABLET 3XDAILY REDUCE TO 2XDAILY AFTER 2DAYS THEN 1X DAILY AFTER  2DAYS ORAL
     Route: 048
     Dates: start: 20120131, end: 20120209

REACTIONS (2)
  - CEREBROVASCULAR ACCIDENT [None]
  - THROMBOSIS [None]
